FAERS Safety Report 7341062-1 (Version None)
Quarter: 2011Q1

REPORT INFORMATION
  Report Type: 
  Country: None (occurrence: None)
  Receive Date: 20110309
  Receipt Date: 20110224
  Transmission Date: 20110831
  Serious: Yes (Other)
  Sender: FDA-Public Use
  Company Number: PHHY2011HR15044

PATIENT
  Age: 60 Year
  Sex: Male
  Weight: 104 kg

DRUGS (3)
  1. NORMABEL (DIAZEPAM) [Interacting]
     Indication: BACK PAIN
     Dosage: 1 DF, QD
     Route: 048
     Dates: start: 20110129, end: 20110130
  2. KETONAL FORTE [Interacting]
     Dosage: 1 DF, UNK
     Route: 048
     Dates: start: 20110129, end: 20110131
  3. KETONAL FORTE [Suspect]
     Indication: BACK PAIN
     Dosage: 2 DF, UNK
     Route: 048
     Dates: start: 20110128

REACTIONS (8)
  - DYSPNOEA [None]
  - BLOOD PRESSURE INCREASED [None]
  - DIZZINESS [None]
  - COLD SWEAT [None]
  - DISCOMFORT [None]
  - FEELING ABNORMAL [None]
  - DRUG INTERACTION [None]
  - NAUSEA [None]
